FAERS Safety Report 7302600-8 (Version None)
Quarter: 2011Q1

REPORT INFORMATION
  Report Type: 
  Country: None (occurrence: None)
  Receive Date: 20110218
  Receipt Date: 20110215
  Transmission Date: 20110831
  Serious: Yes (Hospitalization)
  Sender: FDA-Public Use
  Company Number: JP-PFIZER INC-2011027407

PATIENT
  Age: 70 Year
  Sex: Female

DRUGS (2)
  1. ASPIRIN [Concomitant]
     Dosage: UNK
     Dates: start: 20100401
  2. SELARA [Suspect]
     Dosage: UNK
     Route: 048
     Dates: start: 20081110

REACTIONS (2)
  - HEPATIC FUNCTION ABNORMAL [None]
  - HAEMOLYTIC ANAEMIA [None]
